FAERS Safety Report 5199988-3 (Version None)
Quarter: 2007Q1

REPORT INFORMATION
  Report Type: 
  Country: None (occurrence: None)
  Receive Date: 20070105
  Receipt Date: 20061226
  Transmission Date: 20070707
  Serious: Yes (Hospitalization, Other)
  Sender: FDA-Public Use
  Company Number: PHBS2006JP14719

PATIENT
  Age: 26 Year
  Sex: Female

DRUGS (4)
  1. NEORAL [Suspect]
     Indication: RENAL TRANSPLANT
     Dosage: 8 MG/KG/D
     Route: 048
     Dates: start: 20060201
  2. SIMULECT [Suspect]
     Indication: RENAL TRANSPLANT
     Dosage: 20 MG
     Route: 042
     Dates: start: 20060201, end: 20060201
  3. PREDNISOLONE [Suspect]
     Indication: RENAL TRANSPLANT
     Route: 048
  4. CELLCEPT [Suspect]
     Indication: RENAL TRANSPLANT
     Route: 048

REACTIONS (5)
  - LYMPHADENECTOMY [None]
  - LYMPHADENOPATHY [None]
  - MASS [None]
  - PAPILLARY THYROID CANCER [None]
  - THYROIDECTOMY [None]
